FAERS Safety Report 9967922 (Version 1)
Quarter: 2014Q1

REPORT INFORMATION
  Report Type: Report from Study
  Country: US (occurrence: US)
  Receive Date: 20140306
  Receipt Date: 20140306
  Transmission Date: 20141002
  Serious: No
  Sender: FDA-Public Use
  Company Number: US-ABBVIE-13P-163-1147558-00

PATIENT
  Age: 51 Year
  Sex: Female

DRUGS (11)
  1. HUMIRA [Suspect]
     Indication: CROHN^S DISEASE
     Dates: start: 20130817, end: 20130817
  2. HUMIRA [Suspect]
     Dates: start: 20130831, end: 20130831
  3. HUMIRA [Suspect]
     Dates: end: 201309
  4. HUMIRA [Suspect]
     Dates: start: 20130916
  5. SULFASALAZINE [Concomitant]
     Indication: CROHN^S DISEASE
  6. PREDNISONE [Concomitant]
     Indication: PRODUCT USED FOR UNKNOWN INDICATION
     Dosage: 10MG IN THE MORNING, 5MG AT BEDTIME
     Dates: end: 20130826
  7. PREDNISONE [Concomitant]
     Dates: start: 20130826, end: 20130909
  8. PREDNISONE [Concomitant]
     Dates: start: 20130909, end: 20130923
  9. PREDNISONE [Concomitant]
     Dates: start: 20130923
  10. LISINOPRIL [Concomitant]
     Indication: HYPERTENSION
  11. VITAMINS [Concomitant]
     Indication: PRODUCT USED FOR UNKNOWN INDICATION

REACTIONS (1)
  - Nasopharyngitis [Recovered/Resolved]
